FAERS Safety Report 14284692 (Version 2)
Quarter: 2018Q1

REPORT INFORMATION
  Report Type: Spontaneous
  Country: SE (occurrence: SE)
  Receive Date: 20171214
  Receipt Date: 20180220
  Transmission Date: 20180509
  Serious: Yes (Other)
  Sender: FDA-Public Use
  Company Number: SE-ASTRAZENECA-2017SF24269

PATIENT
  Sex: Female

DRUGS (1)
  1. NOVOPULMON NOVOLIZER [Suspect]
     Active Substance: BUDESONIDE
     Indication: ASTHMA
     Route: 055

REACTIONS (4)
  - Sensation of foreign body [Recovering/Resolving]
  - Foreign body in respiratory tract [Recovering/Resolving]
  - Cough [Unknown]
  - Product quality issue [Unknown]

NARRATIVE: CASE EVENT DATE: 20171022
